FAERS Safety Report 13578282 (Version 1)
Quarter: 2017Q2

REPORT INFORMATION
  Report Type: Spontaneous
  Country: BR (occurrence: BR)
  Receive Date: 20170524
  Receipt Date: 20170524
  Transmission Date: 20170830
  Serious: Yes (Death, Other)
  Sender: FDA-Public Use
  Company Number: BR-PFIZER INC-2017227133

PATIENT
  Age: 82 Year
  Sex: Male

DRUGS (2)
  1. CELEBRA [Suspect]
     Active Substance: CELECOXIB
     Indication: PAIN
  2. CELEBRA [Suspect]
     Active Substance: CELECOXIB
     Indication: MYALGIA
     Dosage: UNK
     Dates: start: 2013

REACTIONS (1)
  - Death [Fatal]
